FAERS Safety Report 5102604-X (Version None)
Quarter: 2006Q3

REPORT INFORMATION
  Report Type: 
  Country: None (occurrence: None)
  Receive Date: 20060912
  Receipt Date: 20060907
  Transmission Date: 20061208
  Serious: Yes (Other)
  Sender: FDA-Public Use
  Company Number: US-MERCK-0609USA01547

PATIENT
  Age: 75 Year
  Sex: Male

DRUGS (5)
  1. HYZAAR [Suspect]
     Indication: BLOOD PRESSURE
     Route: 048
  2. COZAAR [Suspect]
     Indication: BLOOD PRESSURE
     Route: 048
     Dates: start: 20060101
  3. GLUCOPHAGE [Concomitant]
     Route: 065
  4. NAPROXEN [Concomitant]
     Route: 065
  5. [THERAPY UNSPECIFIED] [Concomitant]
     Route: 065

REACTIONS (2)
  - BLOOD PRESSURE INCREASED [None]
  - DRUG INEFFECTIVE [None]
